FAERS Safety Report 7378186-9 (Version None)
Quarter: 2011Q1

REPORT INFORMATION
  Report Type: 
  Country: None (occurrence: None)
  Receive Date: 20110328
  Receipt Date: 20110316
  Transmission Date: 20110831
  Serious: Yes (Death, Hospitalization)
  Sender: FDA-Public Use
  Company Number: A0886509A

PATIENT
  Age: 52 Year
  Sex: Male
  Weight: 108.2 kg

DRUGS (9)
  1. AVANDARYL [Suspect]
     Indication: DIABETES MELLITUS
     Route: 048
     Dates: start: 20060130, end: 20061203
  2. TPN [Concomitant]
  3. AVANDAMET [Suspect]
     Indication: DIABETES MELLITUS
     Route: 048
     Dates: start: 20040106, end: 20070211
  4. BENICAR [Concomitant]
  5. LIPITOR [Concomitant]
  6. NIACIN [Concomitant]
  7. TOPROL-XL [Concomitant]
  8. AVANDIA [Suspect]
     Indication: DIABETES MELLITUS
     Dosage: 8MG PER DAY
     Route: 048
     Dates: end: 20040105
  9. ASPIRIN [Concomitant]

REACTIONS (6)
  - ACUTE MYOCARDIAL INFARCTION [None]
  - RENAL FAILURE ACUTE [None]
  - SHOCK [None]
  - ARTERIOSCLEROSIS CORONARY ARTERY [None]
  - PANCREATITIS ACUTE [None]
  - ACUTE RESPIRATORY FAILURE [None]
